FAERS Safety Report 5512471-8 (Version None)
Quarter: 2007Q4

REPORT INFORMATION
  Report Type: 
  Country: None (occurrence: None)
  Receive Date: 20071112
  Receipt Date: 20070319
  Transmission Date: 20080405
  Serious: No
  Sender: FDA-Public Use
  Company Number: A0643694A

PATIENT
  Age: 42 Year
  Sex: Male

DRUGS (4)
  1. AVANDAMET [Suspect]
     Route: 048
     Dates: start: 20060313, end: 20060318
  2. ZETIA [Concomitant]
  3. BENICAR [Concomitant]
  4. LYRICA [Concomitant]

REACTIONS (1)
  - VISION BLURRED [None]
